FAERS Safety Report 9481915 (Version 3)
Quarter: 2014Q2

REPORT INFORMATION
  Report Type: Report from Study
  Country: AU (occurrence: AU)
  Receive Date: 20130828
  Receipt Date: 20140416
  Transmission Date: 20141212
  Serious: Yes (Other)
  Sender: FDA-Public Use
  Company Number: AU-ROCHE-1266417

PATIENT
  Age: 45 Year
  Sex: Female

DRUGS (1)
  1. ACTEMRA [Suspect]
     Indication: RHEUMATOID ARTHRITIS
     Route: 042
     Dates: start: 20130415

REACTIONS (5)
  - Foot fracture [Recovered/Resolved]
  - Joint dislocation [Recovered/Resolved]
  - Fall [Unknown]
  - Joint dislocation [Recovered/Resolved]
  - Pneumonia [Recovered/Resolved]
